FAERS Safety Report 13900846 (Version 1)
Quarter: 2017Q3

REPORT INFORMATION
  Report Type: Report from Study
  Country: None (occurrence: CZ)
  Receive Date: 20170824
  Receipt Date: 20170824
  Transmission Date: 20171127
  Serious: Yes (Hospitalization)
  Sender: FDA-Public Use
  Company Number: CZ-ABBVIE-16P-217-1712268-00

PATIENT
  Age: 68 Year
  Sex: Female

DRUGS (81)
  1. PREDNISONE. [Suspect]
     Active Substance: PREDNISONE
     Indication: B-CELL LYMPHOMA
     Dosage: MOST RECENT DOSE PRIOR TO THE EVENT ONSET: 19/AUG/2016 OF 100 MG ON DAYS 1-5 PER CYCLE
     Route: 048
     Dates: start: 20160606
  2. LETROX [Concomitant]
     Active Substance: LEVOTHYROXINE SODIUM
     Indication: HYPOTHYROIDISM
     Route: 065
  3. AMIKACIN [Concomitant]
     Active Substance: AMIKACIN
     Indication: PROPHYLAXIS
     Dates: start: 20160714, end: 20160719
  4. ZARZIO [Concomitant]
     Active Substance: FILGRASTIM
     Dates: start: 20160824, end: 20160824
  5. ZARZIO [Concomitant]
     Active Substance: FILGRASTIM
     Dates: start: 20161012, end: 20161013
  6. CETIRIZIN [Concomitant]
     Active Substance: CETIRIZINE HYDROCHLORIDE
     Indication: PREMEDICATION
     Dates: start: 20160725, end: 20160725
  7. KALNORMIN [Concomitant]
     Active Substance: POTASSIUM CHLORIDE
     Indication: HYPOKALAEMIA
     Dates: start: 20160803, end: 20161118
  8. HELICID [Concomitant]
     Active Substance: OMEPRAZOLE
     Dates: start: 20160725, end: 20160729
  9. SMECTA [Concomitant]
     Active Substance: MONTMORILLONITE
     Dates: start: 20161024, end: 20161024
  10. AMIODARON [Concomitant]
     Active Substance: AMIODARONE
     Indication: ATRIAL FIBRILLATION
     Dates: start: 20160826, end: 20160826
  11. PROTHIAZINE [Concomitant]
     Indication: PRODUCT USED FOR UNKNOWN INDICATION
     Dates: start: 20160824, end: 20160825
  12. EGILOK SUCC [Concomitant]
     Indication: HYPERTENSION
     Dates: start: 20160901
  13. DOXORUBICIN [Suspect]
     Active Substance: DOXORUBICIN
     Indication: B-CELL LYMPHOMA
     Dosage: MOST RECENT DOSE PRIOR TO THE EVENT ONSET: 15/AUG/2016 OF 93 MG
     Route: 042
     Dates: start: 20160606
  14. MILURIT [Concomitant]
     Active Substance: ALLOPURINOL
     Indication: HYPERURICAEMIA
     Route: 065
     Dates: start: 20160713, end: 20161005
  15. ONDANSETRON [Concomitant]
     Active Substance: ONDANSETRON
     Dates: start: 20160913, end: 20160913
  16. ENDIARON [Concomitant]
     Indication: DIARRHOEA
     Dates: start: 20160816, end: 20160818
  17. METOCLOPRAMIDE. [Concomitant]
     Active Substance: METOCLOPRAMIDE
     Indication: NAUSEA
     Dates: start: 20160824, end: 20160824
  18. OMEPRAZOL [Concomitant]
     Active Substance: OMEPRAZOLE
     Dates: start: 20161005, end: 20161013
  19. CETIXIN [Concomitant]
     Dates: start: 20161005, end: 20161005
  20. FLUCONAZOLE. [Concomitant]
     Active Substance: FLUCONAZOLE
     Indication: ORAL CANDIDIASIS
     Dates: start: 20160919, end: 20160923
  21. PREDNISON [Concomitant]
     Active Substance: PREDNISONE
     Indication: PRODUCT USED FOR UNKNOWN INDICATION
     Dates: start: 20161005, end: 20161013
  22. ZALDIAR [Concomitant]
     Active Substance: ACETAMINOPHEN\TRAMADOL HYDROCHLORIDE
     Indication: ARTHRALGIA
     Dates: start: 20160824, end: 20160824
  23. VINCRISTINE [Suspect]
     Active Substance: VINCRISTINE
     Indication: B-CELL LYMPHOMA
     Dosage: MOST RECENT DOSE PRIOR TO THE EVENT ONST: 15/AUG/2016 OF 2 MG
     Route: 042
     Dates: start: 20160606
  24. PARACETAMOL [Concomitant]
     Active Substance: ACETAMINOPHEN
     Dates: start: 20161116, end: 20161116
  25. METOCLOPRAMIDE. [Concomitant]
     Active Substance: METOCLOPRAMIDE
     Dates: start: 20160829, end: 20160830
  26. PROPANORM [Concomitant]
     Active Substance: PROPAFENONE
     Indication: ATRIAL FIBRILLATION
     Dates: start: 20160826, end: 20160826
  27. HUMULIN R [Concomitant]
     Active Substance: INSULIN HUMAN
     Indication: HYPERGLYCAEMIA
     Dates: start: 20160824, end: 20160825
  28. KALIUM CHLORATUM [Concomitant]
     Active Substance: POTASSIUM CHLORIDE
     Indication: HYPOKALAEMIA
     Route: 042
     Dates: start: 20160824, end: 20160825
  29. DEGAN [Concomitant]
     Active Substance: METOCLOPRAMIDE HYDROCHLORIDE
     Indication: PRODUCT USED FOR UNKNOWN INDICATION
     Dates: start: 20160725, end: 20160725
  30. RITUXIMAB. [Suspect]
     Active Substance: RITUXIMAB
     Indication: B-CELL LYMPHOMA
     Dosage: MOST RECENT DOSE PRIOR TO THE EVENT ONSET: 15/AUG/2016 OF 699 MG
     Route: 042
     Dates: start: 20160606
  31. ZARZIO [Concomitant]
     Active Substance: FILGRASTIM
     Dates: start: 20160731, end: 20160804
  32. PARACETAMOL [Concomitant]
     Active Substance: ACETAMINOPHEN
     Indication: PREMEDICATION
     Dates: start: 20160725, end: 20160725
  33. KALNORMIN [Concomitant]
     Active Substance: POTASSIUM CHLORIDE
     Dates: start: 20160825, end: 20160827
  34. FLUCONAZOLE. [Concomitant]
     Active Substance: FLUCONAZOLE
     Dates: start: 20161014, end: 20161020
  35. LEXAURIN [Concomitant]
     Active Substance: BROMAZEPAM
     Indication: PRODUCT USED FOR UNKNOWN INDICATION
     Dates: start: 20160831, end: 20160831
  36. DEGAN [Concomitant]
     Active Substance: METOCLOPRAMIDE HYDROCHLORIDE
     Dates: start: 20160815, end: 20160815
  37. VENETOCLAX. [Suspect]
     Active Substance: VENETOCLAX
     Indication: B-CELL LYMPHOMA
     Dosage: MOST RECENT DOSE PRIOR TO THE EVENT ONSET: 16/AUG/2016
     Route: 048
     Dates: start: 20160609
  38. KINITO [Concomitant]
     Indication: NAUSEA
     Route: 065
     Dates: start: 20160803
  39. SOLU-MEDROL [Concomitant]
     Active Substance: METHYLPREDNISOLONE SODIUM SUCCINATE
     Indication: PREMEDICATION
     Dates: start: 20160725, end: 20160725
  40. PARACETAMOL [Concomitant]
     Active Substance: ACETAMINOPHEN
     Dates: start: 20160913, end: 20160913
  41. HELICID [Concomitant]
     Active Substance: OMEPRAZOLE
     Indication: PRODUCT USED FOR UNKNOWN INDICATION
     Dates: start: 20160815, end: 20160819
  42. CETIXIN [Concomitant]
     Indication: PREMEDICATION
     Dates: start: 20160913, end: 20160913
  43. ENDIARON [Concomitant]
     Indication: DIARRHOEA
     Dates: start: 20161024, end: 20161024
  44. CYCLOPHOSPHAMIDE. [Suspect]
     Active Substance: CYCLOPHOSPHAMIDE
     Indication: B-CELL LYMPHOMA
     Dosage: MOST RECENT DOSE PRIOR TO THE EVENT ONSET: 15/AUG/2016 OF 1398 MG
     Route: 042
     Dates: start: 20160606
  45. BETALOC SR [Concomitant]
     Indication: HYPERTENSION
     Route: 065
  46. PRENEWEL [Concomitant]
     Active Substance: INDAPAMIDE\PERINDOPRIL ERBUMINE
     Indication: HYPERTENSION
     Route: 065
  47. DETRALEX [Concomitant]
     Active Substance: DIOSMIN\HESPERIDIN
     Indication: OEDEMA PERIPHERAL
     Route: 065
     Dates: start: 20160628
  48. MYCOMAX (FLUCONAZOL) [Concomitant]
     Indication: MUCOSAL INFLAMMATION
     Route: 065
     Dates: start: 20160613, end: 20160719
  49. FURON [Concomitant]
     Active Substance: FUROSEMIDE
     Dates: start: 20160826, end: 20160828
  50. ZARZIO [Concomitant]
     Active Substance: FILGRASTIM
     Dates: start: 20160820, end: 20160825
  51. PARACETAMOL [Concomitant]
     Active Substance: ACETAMINOPHEN
     Dates: start: 20161026, end: 20161026
  52. ONDANSETRON [Concomitant]
     Active Substance: ONDANSETRON
     Dates: start: 20161005, end: 20161005
  53. ONDANSETRON [Concomitant]
     Active Substance: ONDANSETRON
     Dates: start: 20160815, end: 20160815
  54. HELICID [Concomitant]
     Active Substance: OMEPRAZOLE
     Dates: start: 20160913, end: 20160917
  55. SMECTA [Concomitant]
     Active Substance: MONTMORILLONITE
     Indication: DIARRHOEA
     Dates: start: 20160816, end: 20160817
  56. OMEPRAZOL [Concomitant]
     Active Substance: OMEPRAZOLE
     Indication: NAUSEA
     Dates: start: 20160824, end: 20160824
  57. CORSODYL [Concomitant]
     Active Substance: CHLORHEXIDINE GLUCONATE
     Indication: ORAL CANDIDIASIS
     Dates: start: 20161014, end: 20161024
  58. BISEPTOL [Concomitant]
     Active Substance: SULFAMETHOXAZOLE\TRIMETHOPRIM
     Indication: PROPHYLAXIS
     Dates: start: 20160714, end: 20160719
  59. BISEPTOL [Concomitant]
     Active Substance: SULFAMETHOXAZOLE\TRIMETHOPRIM
     Dates: start: 20160827, end: 20160902
  60. NUTRIDRINK [Concomitant]
     Dates: start: 20160824, end: 20160901
  61. NOVALGIN [Concomitant]
     Active Substance: METAMIZOLE SODIUM
     Indication: PRODUCT USED FOR UNKNOWN INDICATION
     Dates: start: 20160824, end: 20160825
  62. FRAXIPARINE [Concomitant]
     Active Substance: NADROPARIN CALCIUM
     Indication: THROMBOSIS PROPHYLAXIS
     Route: 065
     Dates: start: 20160527
  63. DORETA (PARACETAMOL/TRAMAL) [Concomitant]
     Indication: PRODUCT USED FOR UNKNOWN INDICATION
     Route: 065
     Dates: start: 20160527
  64. METOPROLOL. [Concomitant]
     Active Substance: METOPROLOL
     Indication: ATRIAL FIBRILLATION
     Route: 065
     Dates: start: 20160615
  65. MILURIT [Concomitant]
     Active Substance: ALLOPURINOL
     Dates: start: 20161014
  66. FURON [Concomitant]
     Active Substance: FUROSEMIDE
     Indication: OEDEMA PERIPHERAL
     Dates: start: 20160620
  67. MAXIPIME [Concomitant]
     Active Substance: CEFEPIME HYDROCHLORIDE
     Indication: STOMATITIS
     Dates: start: 20160714, end: 20160719
  68. ZARZIO [Concomitant]
     Active Substance: FILGRASTIM
     Indication: NEUTROPENIA
     Dates: start: 20160730, end: 20160802
  69. KALNORMIN [Concomitant]
     Active Substance: POTASSIUM CHLORIDE
     Dates: start: 20160725, end: 20161116
  70. ALERID [Concomitant]
     Active Substance: CETIRIZINE HYDROCHLORIDE
     Indication: PREMEDICATION
     Dates: start: 20160815, end: 20160815
  71. NUTRIDRINK [Concomitant]
     Indication: NUTRITIONAL SUPPLEMENTATION
     Dates: start: 20160714, end: 20160719
  72. MAXIPIME [Concomitant]
     Active Substance: CEFEPIME HYDROCHLORIDE
     Indication: FEBRILE NEUTROPENIA
  73. ZARZIO [Concomitant]
     Active Substance: FILGRASTIM
     Dates: start: 20160920, end: 20160923
  74. PARACETAMOL [Concomitant]
     Active Substance: ACETAMINOPHEN
     Dates: start: 20160815, end: 20160815
  75. PARACETAMOL [Concomitant]
     Active Substance: ACETAMINOPHEN
     Dates: start: 20161005, end: 20161005
  76. ONDANSETRON [Concomitant]
     Active Substance: ONDANSETRON
     Indication: VOMITING
     Dates: start: 20160725, end: 20160725
  77. TIROPRAMIDE [Concomitant]
     Active Substance: TIROPRAMIDE
     Indication: NAUSEA
     Dates: start: 20160803, end: 20160815
  78. ALERID [Concomitant]
     Active Substance: CETIRIZINE HYDROCHLORIDE
     Dates: start: 20161116, end: 20161116
  79. COTRIMOXAZOL [Concomitant]
     Active Substance: SULFAMETHOXAZOLE\TRIMETHOPRIM
     Indication: C-REACTIVE PROTEIN INCREASED
     Dates: start: 20160827, end: 20160902
  80. TANTUM VERDE [Concomitant]
     Active Substance: BENZYDAMINE HYDROCHLORIDE
     Indication: PRODUCT USED FOR UNKNOWN INDICATION
     Dates: start: 20161005, end: 20161014
  81. PURINOL [Concomitant]
     Active Substance: ALLOPURINOL
     Indication: HYPERURICAEMIA
     Dates: start: 20160715

REACTIONS (1)
  - Dehydration [Recovered/Resolved]

NARRATIVE: CASE EVENT DATE: 20160818
